FAERS Safety Report 7311953-6 (Version None)
Quarter: 2011Q1

REPORT INFORMATION
  Report Type: 
  Country: None (occurrence: None)
  Receive Date: 20110215
  Receipt Date: 20110215
  Transmission Date: 20110831
  Serious: Yes (Other)
  Sender: FDA-Public Use
  Company Number: None

PATIENT
  Age: 54 Year
  Sex: Female
  Weight: 136.4 kg

DRUGS (4)
  1. CYMBALTA [Suspect]
     Indication: DEPRESSION
     Dosage: 60 MG 1X DAY
     Dates: start: 20100430
  2. CYMBALTA [Suspect]
     Indication: FIBROMYALGIA
     Dosage: 60 MG 1X DAY
     Dates: start: 20100430
  3. CYMBALTA [Suspect]
     Indication: DEPRESSION
     Dosage: 60 MG 1X DAY
     Dates: start: 20100810
  4. CYMBALTA [Suspect]
     Indication: FIBROMYALGIA
     Dosage: 60 MG 1X DAY
     Dates: start: 20100810

REACTIONS (3)
  - PARAESTHESIA [None]
  - HALLUCINATION, AUDITORY [None]
  - ILL-DEFINED DISORDER [None]
